FAERS Safety Report 8161017-7 (Version None)
Quarter: 2012Q1

REPORT INFORMATION
  Report Type: 
  Country: None (occurrence: None)
  Receive Date: 20120224
  Receipt Date: 20120213
  Transmission Date: 20120608
  Serious: Yes (Other)
  Sender: FDA-Public Use
  Company Number: US-BIOGENIDEC-2011BI037239

PATIENT
  Age: 56 Year
  Sex: Female

DRUGS (7)
  1. TYSABRI [Suspect]
     Indication: MULTIPLE SCLEROSIS
     Route: 042
     Dates: start: 20070711, end: 20110802
  2. OXYBUTYNIN [Concomitant]
  3. SERTRALINE HYDROCHLORIDE [Concomitant]
  4. BACLOFEN [Concomitant]
  5. TOVIAZ [Concomitant]
  6. HYDROCODONE BITARTRATE AND ACETAMINOPHEN [Concomitant]
  7. AMPYRA [Concomitant]

REACTIONS (2)
  - MALIGNANT MELANOMA STAGE II [None]
  - OEDEMA PERIPHERAL [None]
